FAERS Safety Report 15279718 (Version 2)
Quarter: 2018Q3

REPORT INFORMATION
  Report Type: Spontaneous
  Country: US (occurrence: US)
  Receive Date: 20180815
  Receipt Date: 20180827
  Transmission Date: 20181010
  Serious: No
  Sender: FDA-Public Use
  Company Number: US-TEVA-2018-US-943558

PATIENT
  Sex: Female

DRUGS (1)
  1. LORAZEPAM. [Suspect]
     Active Substance: LORAZEPAM
     Indication: ANXIETY
     Dosage: .25 MILLIGRAM DAILY; HALF TABLET QD
     Route: 048
     Dates: start: 201802

REACTIONS (4)
  - Headache [Unknown]
  - Dizziness [Unknown]
  - Wrong technique in product usage process [Unknown]
  - Burning sensation [Unknown]
